FAERS Safety Report 5591634-X (Version None)
Quarter: 2008Q1

REPORT INFORMATION
  Report Type: 
  Country: None (occurrence: None)
  Receive Date: 20080115
  Receipt Date: 20080106
  Transmission Date: 20080703
  Serious: Yes (Life-Threatening)
  Sender: FDA-Public Use
  Company Number: CN-ROCHE-540062

PATIENT
  Age: 43 Year
  Sex: Male

DRUGS (1)
  1. ROCEPHIN [Suspect]
     Indication: PROPHYLAXIS
     Dosage: DOSAGE REGIMEN: 20 ML PER DAY
     Route: 042
     Dates: start: 20080106, end: 20080106

REACTIONS (2)
  - ANAPHYLACTIC SHOCK [None]
  - VENTRICULAR FIBRILLATION [None]
